FAERS Safety Report 5950967-5 (Version None)
Quarter: 2008Q4

REPORT INFORMATION
  Report Type: 
  Country: None (occurrence: None)
  Receive Date: 20081110
  Receipt Date: 20081103
  Transmission Date: 20090506
  Serious: Yes (Death, Life-Threatening, Hospitalization, Disabling, Other)
  Sender: FDA-Public Use
  Company Number: 2007SP018948

PATIENT
  Age: 52 Year
  Sex: Male
  Weight: 92.9874 kg

DRUGS (8)
  1. TEMODAR [Suspect]
     Indication: ASTROCYTOMA
     Dosage: 140 MG;QD;PO
     Route: 048
     Dates: start: 20060316, end: 20060425
  2. ALLOPURINOL [Suspect]
     Indication: GOUT
     Dosage: 300 MG;QD;PO
     Route: 048
     Dates: start: 20050101, end: 20060501
  3. KEPPRA [Concomitant]
  4. PROTONIX [Concomitant]
  5. DILANTIN [Concomitant]
  6. TOPROL-XL [Concomitant]
  7. LIPITOR [Concomitant]
  8. ASPIRIN [Concomitant]

REACTIONS (3)
  - BONE MARROW FAILURE [None]
  - DRUG INTERACTION [None]
  - NEPHROLITHIASIS [None]
